FAERS Safety Report 23089802 (Version 1)
Quarter: 2023Q4

REPORT INFORMATION
  Report Type: Spontaneous
  Country: US (occurrence: US)
  Receive Date: 20231020
  Receipt Date: 20231020
  Transmission Date: 20240109
  Serious: Yes (Other)
  Sender: FDA-Public Use
  Company Number: US-Blueprint Medicines Corporation-1600

PATIENT
  Sex: Female

DRUGS (1)
  1. AYVAKIT [Suspect]
     Active Substance: AVAPRITINIB
     Indication: Haematopoietic neoplasm
     Route: 065
     Dates: start: 20230604

REACTIONS (6)
  - Eye haemorrhage [Unknown]
  - Anxiety [Unknown]
  - Ocular hyperaemia [Unknown]
  - Arthropathy [Unknown]
  - Hypoaesthesia [Unknown]
  - Paraesthesia [Unknown]
